FAERS Safety Report 9843655 (Version 1)
Quarter: 2013Q4

REPORT INFORMATION
  Report Type: Spontaneous
  Country: US (occurrence: None)
  Receive Date: 20131223
  Receipt Date: 20131223
  Transmission Date: 20140711
  Serious: Yes (Other)
  Sender: FDA-Public Use
  Company Number: 220010LEO

PATIENT
  Sex: Male

DRUGS (3)
  1. PICATO [Suspect]
     Indication: ACTINIC KERATOSIS
     Dosage: 1 IN 1 D, DERM
     Route: 061
     Dates: start: 20121219, end: 20121221
  2. METFORMIN (METFORMIN) [Concomitant]
  3. VITAMINS (VITAMINS NOS) [Concomitant]

REACTIONS (3)
  - Application site dryness [None]
  - Application site exfoliation [None]
  - Drug administered at inappropriate site [None]
